FAERS Safety Report 9050864 (Version 3)
Quarter: 2015Q2

REPORT INFORMATION
  Report Type: Spontaneous
  Country: US (occurrence: US)
  Receive Date: 20130205
  Receipt Date: 20150429
  Transmission Date: 20150821
  Serious: No
  Sender: FDA-Public Use
  Company Number: US-BIOGENIDEC-2013BI009024

PATIENT
  Age: 44 Year
  Sex: Male

DRUGS (1)
  1. TYSABRI [Suspect]
     Active Substance: NATALIZUMAB
     Indication: MULTIPLE SCLEROSIS
     Route: 042
     Dates: start: 20121126

REACTIONS (23)
  - Dyskinesia [Unknown]
  - Multiple sclerosis relapse [Unknown]
  - Disturbance in attention [Unknown]
  - Gait disturbance [Unknown]
  - Asthenia [Recovered/Resolved]
  - Visual acuity reduced [Unknown]
  - Weight decreased [Unknown]
  - Eye pain [Unknown]
  - Memory impairment [Unknown]
  - Muscle spasticity [Unknown]
  - Hypoaesthesia [Unknown]
  - Central nervous system lesion [Unknown]
  - General symptom [Unknown]
  - Pyrexia [Recovered/Resolved]
  - Headache [Unknown]
  - Back pain [Unknown]
  - Stress [Recovered/Resolved]
  - Influenza like illness [Unknown]
  - Fibromyalgia [Unknown]
  - Insomnia [Unknown]
  - Emotional disorder [Unknown]
  - Coordination abnormal [Unknown]
  - Gastrointestinal disorder [Unknown]

NARRATIVE: CASE EVENT DATE: 201212
